FAERS Safety Report 13657373 (Version 4)
Quarter: 2020Q3

REPORT INFORMATION
  Report Type: Report from Study
  Country: DE (occurrence: DE)
  Receive Date: 20170615
  Receipt Date: 20171120
  Transmission Date: 20201104
  Serious: Yes (Death, Life-Threatening, Hospitalization, Disabling, Other)
  Sender: FDA-Public Use
  Company Number: DE-ASTRAZENECA-2016SE90738

PATIENT
  Age: 61 Year
  Sex: Male

DRUGS (11)
  1. ZOPICLON [Concomitant]
     Active Substance: ZOPICLONE
     Indication: HYPNOTHERAPY
     Dosage: 7.5MG AS REQUIRED
     Route: 048
     Dates: start: 20160720
  2. MEDI4736 [Suspect]
     Active Substance: DURVALUMAB
     Indication: SQUAMOUS CELL CARCINOMA OF HEAD AND NECK
     Route: 042
     Dates: start: 20160720, end: 20160720
  3. MEDI4736 [Suspect]
     Active Substance: DURVALUMAB
     Indication: SQUAMOUS CELL CARCINOMA OF HEAD AND NECK
     Route: 042
     Dates: start: 20160817, end: 20160817
  4. TREMELIMUMAB. [Suspect]
     Active Substance: TREMELIMUMAB
     Indication: SQUAMOUS CELL CARCINOMA OF HEAD AND NECK
     Route: 042
     Dates: start: 20160817, end: 20160817
  5. ALLOPURINOL. [Concomitant]
     Active Substance: ALLOPURINOL
     Indication: HYPERURICAEMIA
     Route: 048
     Dates: start: 20100101
  6. RED CELL CONCENTRATE [Concomitant]
     Indication: ANAEMIA
     Dosage: 700.0ML ONCE/SINGLE ADMINISTRATION
     Route: 042
     Dates: start: 20160803, end: 20160803
  7. ARNICA [Concomitant]
     Active Substance: ARNICA MONTANA FLOWER
     Indication: SUPPORTIVE CARE
     Dosage: 6, 70 D6 QH
     Route: 048
     Dates: start: 2015, end: 20160914
  8. TREMELIMUMAB. [Suspect]
     Active Substance: TREMELIMUMAB
     Indication: SQUAMOUS CELL CARCINOMA OF HEAD AND NECK
     Route: 042
     Dates: start: 20160720, end: 20160720
  9. NOVAMINSULFON [Concomitant]
     Active Substance: METAMIZOLE
     Indication: PAIN
     Dosage: 20 GTT TID
     Route: 048
     Dates: start: 20160720, end: 20160914
  10. ESOMEPRAZOLE. [Concomitant]
     Active Substance: ESOMEPRAZOLE MAGNESIUM
     Indication: ULCER
     Route: 048
     Dates: start: 201608
  11. SCOPOLAMIN [Concomitant]
     Active Substance: SCOPOLAMINE
     Indication: SALIVARY HYPERSECRETION
     Dosage: 1.50 MG CHANGING EVERY 3RD DAY
     Route: 003
     Dates: start: 2016, end: 20160820

REACTIONS (1)
  - Pharyngeal oedema [Recovered/Resolved]

NARRATIVE: CASE EVENT DATE: 20160808
